FAERS Safety Report 12689087 (Version 1)
Quarter: 2016Q3

REPORT INFORMATION
  Report Type: Spontaneous
  Country: GB (occurrence: GB)
  Receive Date: 20160826
  Receipt Date: 20160826
  Transmission Date: 20161109
  Serious: Yes (Life-Threatening, Hospitalization)
  Sender: FDA-Public Use
  Company Number: GB-ACCORD-043354

PATIENT
  Age: 58 Year
  Sex: Female

DRUGS (8)
  1. AMITRIPTYLINE [Suspect]
     Active Substance: AMITRIPTYLINE
     Indication: PAIN
     Dosage: AT NIGHT.
     Route: 048
  2. GABAPENTIN. [Concomitant]
     Active Substance: GABAPENTIN
  3. FOSTAIR [Concomitant]
     Active Substance: BECLOMETHASONE\FORMOTEROL
  4. MORPHINE [Concomitant]
     Active Substance: MORPHINE
  5. ASASANTIN [Suspect]
     Active Substance: ASPIRIN\DIPYRIDAMOLE
     Indication: PRODUCT USED FOR UNKNOWN INDICATION
     Route: 048
  6. MST CONTINUS [Concomitant]
     Active Substance: MORPHINE SULFATE
  7. TRAMADOL. [Concomitant]
     Active Substance: TRAMADOL
  8. SALBUTAMOL [Concomitant]
     Active Substance: ALBUTEROL

REACTIONS (17)
  - Fall [Unknown]
  - Cardiac murmur [Unknown]
  - Sputum discoloured [Unknown]
  - Dyspnoea [Unknown]
  - Venous pressure jugular increased [Unknown]
  - Productive cough [Unknown]
  - Weight fluctuation [Unknown]
  - Wheezing [Unknown]
  - Pancytopenia [Not Recovered/Not Resolved]
  - Hypoaesthesia [Unknown]
  - Abnormal loss of weight [Unknown]
  - Hyperhidrosis [Unknown]
  - Back pain [Unknown]
  - Oedema peripheral [Unknown]
  - Crepitations [Unknown]
  - Dyspnoea paroxysmal nocturnal [Unknown]
  - Constipation [Unknown]
